FAERS Safety Report 7709140-2 (Version None)
Quarter: 2011Q3

REPORT INFORMATION
  Report Type: 
  Country: None (occurrence: None)
  Receive Date: 20110819
  Receipt Date: 20110809
  Transmission Date: 20111222
  Serious: Yes (Hospitalization)
  Sender: FDA-Public Use
  Company Number: B0739790A

PATIENT
  Age: 78 Year
  Sex: Female

DRUGS (1)
  1. DIGOXIN [Suspect]
     Indication: PRODUCT USED FOR UNKNOWN INDICATION
     Dosage: 5 MG SINGLE DOSE

REACTIONS (8)
  - TOXICITY TO VARIOUS AGENTS [None]
  - DIZZINESS [None]
  - NAUSEA [None]
  - SUICIDE ATTEMPT [None]
  - BLOOD CREATININE INCREASED [None]
  - ATRIAL FIBRILLATION [None]
  - INCORRECT DOSE ADMINISTERED [None]
  - VENTRICULAR EXTRASYSTOLES [None]
